FAERS Safety Report 16663033 (Version 1)
Quarter: 2019Q3

REPORT INFORMATION
  Report Type: Report from Study
  Country: US (occurrence: US)
  Receive Date: 20190802
  Receipt Date: 20190802
  Transmission Date: 20191004
  Serious: No
  Sender: FDA-Public Use
  Company Number: US-EXELIXIS-CABO-19019867

PATIENT
  Sex: Male

DRUGS (12)
  1. SENOKOT [Concomitant]
     Active Substance: SENNOSIDES
  2. LEVETIRACETAM. [Concomitant]
     Active Substance: LEVETIRACETAM
  3. DIAZEPAM. [Concomitant]
     Active Substance: DIAZEPAM
  4. FINASTERIDE. [Concomitant]
     Active Substance: FINASTERIDE
  5. LORATADINE. [Concomitant]
     Active Substance: LORATADINE
  6. CABOMETYX [Suspect]
     Active Substance: CABOZANTINIB S-MALATE
     Indication: RENAL CANCER
     Dosage: 40 MG, QD
     Route: 048
     Dates: start: 20180318
  7. ACETAMINOPHEN. [Concomitant]
     Active Substance: ACETAMINOPHEN
  8. LIPITOR [Concomitant]
     Active Substance: ATORVASTATIN CALCIUM
  9. NEXIUM [Concomitant]
     Active Substance: ESOMEPRAZOLE MAGNESIUM
  10. AMBIEN [Concomitant]
     Active Substance: ZOLPIDEM TARTRATE
  11. BISACODYL. [Concomitant]
     Active Substance: BISACODYL
  12. METOPROLOL SUCCINATE. [Concomitant]
     Active Substance: METOPROLOL SUCCINATE

REACTIONS (1)
  - Malaise [Unknown]
